FAERS Safety Report 6602854-7 (Version None)
Quarter: 2010Q1

REPORT INFORMATION
  Report Type: 
  Country: None (occurrence: None)
  Receive Date: 20100226
  Receipt Date: 20100218
  Transmission Date: 20100710
  Serious: Yes (Hospitalization)
  Sender: FDA-Public Use
  Company Number: 2005BI005061

PATIENT
  Age: 40 Year
  Sex: Female

DRUGS (3)
  1. AVONEX [Suspect]
     Indication: MULTIPLE SCLEROSIS
     Route: 030
     Dates: start: 20021001
  2. AVONEX [Suspect]
     Route: 030
  3. MINOCYCLINE HCL [Concomitant]

REACTIONS (2)
  - ENDOMETRIOSIS [None]
  - UTERINE LEIOMYOMA [None]
